FAERS Safety Report 18865439 (Version 4)
Quarter: 2021Q2

REPORT INFORMATION
  Report Type: Spontaneous
  Country: CA (occurrence: CA)
  Receive Date: 20210208
  Receipt Date: 20210422
  Transmission Date: 20210717
  Serious: Yes (Hospitalization, Other)
  Sender: FDA-Public Use
  Company Number: CA-PFIZER INC-2021092023

PATIENT
  Age: 26 Year
  Sex: Male
  Weight: 77 kg

DRUGS (8)
  1. INFLECTRA [Concomitant]
     Active Substance: INFLIXIMAB-DYYB
     Indication: COLITIS ULCERATIVE
     Dosage: 400 MG
     Route: 042
     Dates: start: 20210222
  2. SALAZOPYRIN [Suspect]
     Active Substance: SULFASALAZINE
     Indication: COLITIS ULCERATIVE
     Dosage: 2 G, 1X/DAY
     Dates: start: 202010
  3. PREDNISONE. [Concomitant]
     Active Substance: PREDNISONE
     Dosage: 30 MG, 1X/DAY (AND WEANING FASHION)
  4. INFLECTRA [Concomitant]
     Active Substance: INFLIXIMAB-DYYB
     Dosage: UNK
     Dates: start: 20210413
  5. INFLECTRA [Concomitant]
     Active Substance: INFLIXIMAB-DYYB
     Dosage: UNK
     Dates: start: 20210309
  6. XARELTO [Concomitant]
     Active Substance: RIVAROXABAN
     Dosage: UNK DOSE
  7. SALAZOPYRIN [Suspect]
     Active Substance: SULFASALAZINE
     Dosage: UNK
  8. PREDNISONE. [Concomitant]
     Active Substance: PREDNISONE
     Dosage: UNK

REACTIONS (8)
  - Haemoglobin abnormal [Not Recovered/Not Resolved]
  - Embolism venous [Unknown]
  - Drug ineffective [Unknown]
  - Anaemia [Unknown]
  - Thrombocytosis [Unknown]
  - Condition aggravated [Unknown]
  - Colitis [Unknown]
  - Frequent bowel movements [Unknown]

NARRATIVE: CASE EVENT DATE: 202010
